FAERS Safety Report 4429431-0 (Version None)
Quarter: 2004Q3

REPORT INFORMATION
  Report Type: 
  Country: None (occurrence: None)
  Receive Date: 20040816
  Receipt Date: 20040730
  Transmission Date: 20050211
  Serious: Yes (Hospitalization)
  Sender: FDA-Public Use
  Company Number: 04P-167-0268926-00

PATIENT
  Age: 68 Year
  Sex: Female

DRUGS (9)
  1. HUMIRA [Suspect]
     Indication: RHEUMATOID ARTHRITIS
     Dosage: 40 MG, 1 IN 2 WK, SUBCUTANEOUS
     Route: 058
     Dates: start: 20040301, end: 20040701
  2. PREDNISOLONE [Concomitant]
  3. AMITRIPTYLINE HCL [Concomitant]
  4. ATENOLOL [Concomitant]
  5. ATORVASTATIN [Concomitant]
  6. OMEPRAZOLE [Concomitant]
  7. METHOTREXATE SODIUM [Concomitant]
  8. DIDRONEL [Concomitant]
  9. CLOPIDOGREL [Concomitant]

REACTIONS (5)
  - ABDOMINAL PAIN [None]
  - LOWER RESPIRATORY TRACT INFECTION [None]
  - PLEURAL EFFUSION [None]
  - SPLENIC INFARCTION [None]
  - URINARY TRACT INFECTION [None]
